FAERS Safety Report 9324348 (Version 1)
Quarter: 2013Q2

REPORT INFORMATION
  Report Type: Spontaneous
  Country: PH (occurrence: PH)
  Receive Date: 20130603
  Receipt Date: 20130603
  Transmission Date: 20140414
  Serious: Yes (Death, Hospitalization)
  Sender: FDA-Public Use
  Company Number: PH-BAXTER-2013BAX019808

PATIENT
  Sex: Female

DRUGS (1)
  1. DIANEAL PD2 WITH 2.5% DEXTROSE [Suspect]
     Indication: PERITONEAL DIALYSIS
     Route: 033
     Dates: start: 20120908

REACTIONS (3)
  - Renal failure chronic [Fatal]
  - Loss of consciousness [Unknown]
  - Pulse pressure decreased [Unknown]
